FAERS Safety Report 7276013-1 (Version None)
Quarter: 2011Q1

REPORT INFORMATION
  Report Type: 
  Country: None (occurrence: None)
  Receive Date: 20110204
  Receipt Date: 20110126
  Transmission Date: 20110831
  Serious: Yes (Hospitalization)
  Sender: FDA-Public Use
  Company Number: B0696576A

PATIENT
  Sex: Female
  Weight: 52 kg

DRUGS (8)
  1. SOLANAX [Concomitant]
     Dosage: .8MG PER DAY
     Route: 048
     Dates: start: 20090324, end: 20090429
  2. VEPESID [Concomitant]
     Indication: STEM CELL TRANSPLANT
     Dosage: 250MGM2 PER DAY
     Route: 042
     Dates: start: 20090309, end: 20090311
  3. ENDOXAN [Concomitant]
     Indication: STEM CELL TRANSPLANT
     Dosage: 60MGM2 PER DAY
     Dates: start: 20090309, end: 20090310
  4. DEPAS [Concomitant]
     Dosage: .5MG PER DAY
     Route: 048
     Dates: start: 20090309, end: 20090325
  5. RHYTHMY [Concomitant]
     Dosage: 1MG PER DAY
     Route: 048
     Dates: start: 20090317, end: 20090512
  6. GRAN [Concomitant]
     Dates: start: 20090314, end: 20090401
  7. DECADRON [Concomitant]
     Indication: STEM CELL TRANSPLANT
     Dosage: 40MGM2 PER DAY
     Dates: start: 20090309, end: 20090312
  8. ALKERAN [Suspect]
     Indication: STEM CELL TRANSPLANT
     Dosage: 180MGM2 PER DAY
     Route: 042
     Dates: start: 20090312, end: 20090312

REACTIONS (1)
  - CYSTITIS HAEMORRHAGIC [None]
